FAERS Safety Report 11073093 (Version 2)
Quarter: 2015Q2

REPORT INFORMATION
  Report Type: Spontaneous
  Country: CN (occurrence: CN)
  Receive Date: 20150428
  Receipt Date: 20150507
  Transmission Date: 20150821
  Serious: Yes (Death, Life-Threatening, Hospitalization)
  Sender: FDA-Public Use
  Company Number: CN-GE HEALTHCARE MEDICAL DIAGNOSTICS-VISP-PR-1504S-0125

PATIENT
  Age: 49 Year
  Sex: Female

DRUGS (3)
  1. VISIPAQUE [Suspect]
     Active Substance: IODIXANOL
     Indication: SUBARACHNOID HAEMORRHAGE
     Route: 065
     Dates: start: 20150407, end: 20150407
  2. INSULIN [Concomitant]
     Active Substance: INSULIN NOS
  3. VISIPAQUE [Suspect]
     Active Substance: IODIXANOL
     Indication: THERAPEUTIC PROCEDURE

REACTIONS (9)
  - Cardiopulmonary failure [Fatal]
  - Liver disorder [Fatal]
  - Respiratory failure [Fatal]
  - Depressed level of consciousness [Fatal]
  - Renal failure [Fatal]
  - Hypotonia [Fatal]
  - Urinary incontinence [Fatal]
  - Blood creatinine increased [Fatal]
  - Pulmonary oedema [Fatal]

NARRATIVE: CASE EVENT DATE: 201504
